FAERS Safety Report 5197387-1 (Version None)
Quarter: 2006Q4

REPORT INFORMATION
  Report Type: 
  Country: None (occurrence: None)
  Receive Date: 20060928
  Receipt Date: 20060329
  Transmission Date: 20070319
  Serious: Yes (Other)
  Sender: FDA-Public Use
  Company Number: 2006020027

PATIENT
  Age: 24 Year
  Sex: Female

DRUGS (5)
  1. FELBATOL [Suspect]
     Indication: EPILEPSY
     Dates: start: 19930101, end: 20060214
  2. ZONEGRAN [Concomitant]
  3. KEPPRA [Concomitant]
  4. MIDRIN (MIDRID) [Concomitant]
  5. TRANXENE [Concomitant]

REACTIONS (1)
  - WHITE BLOOD CELL COUNT DECREASED [None]
